FAERS Safety Report 5763478-7 (Version None)
Quarter: 2008Q2

REPORT INFORMATION
  Report Type: 
  Country: None (occurrence: None)
  Receive Date: 20080529
  Receipt Date: 20080331
  Transmission Date: 20081010
  Serious: Yes (Other)
  Sender: FDA-Public Use
  Company Number: CIP06001948

PATIENT
  Age: 53 Year
  Sex: Female

DRUGS (23)
  1. ACTONEL [Suspect]
     Dosage: 5 MG DAILY, ORAL
     Route: 048
     Dates: start: 20010305, end: 20030618
  2. FOSAMAX [Suspect]
     Dosage: 10 MG, ORAL
     Route: 048
     Dates: start: 19970122, end: 20001101
  3. ESTRATAB [Concomitant]
  4. MEDROXYPROGESTERONE [Concomitant]
  5. COUMADIN [Concomitant]
  6. ASTELIN [Concomitant]
  7. NASONEX [Concomitant]
  8. NIASPAN [Concomitant]
  9. BACTROBAN [Concomitant]
  10. MYCELEX [Concomitant]
  11. ATROVENT [Concomitant]
  12. LEVAQUIN [Concomitant]
  13. ZITHROMAX [Concomitant]
  14. DIFLUCAN [Concomitant]
  15. HYDROCODONE (HYDROCODONE) [Concomitant]
  16. KLONOPIN [Concomitant]
  17. AMOXICILLIN [Concomitant]
  18. EFFEXOR [Concomitant]
  19. BAYCOL [Concomitant]
  20. SULFACETAMIDE SODIUM [Concomitant]
  21. NORTRIPTYLINE HCL [Concomitant]
  22. CELEBREX [Concomitant]
  23. LORABID [Concomitant]

REACTIONS (5)
  - NEURITIS [None]
  - OROANTRAL FISTULA [None]
  - OSTEOMYELITIS [None]
  - OSTEONECROSIS [None]
  - PALATAL DISORDER [None]
